FAERS Safety Report 4497032-4 (Version None)
Quarter: 2004Q3

REPORT INFORMATION
  Report Type: 
  Country: None (occurrence: None)
  Receive Date: 20040928
  Receipt Date: 20040722
  Transmission Date: 20050211
  Serious: No
  Sender: FDA-Public Use
  Company Number: 04P-163-0267989-00

PATIENT
  Age: 62 Year
  Sex: Female
  Weight: 72.5755 kg

DRUGS (13)
  1. HUMIRA [Suspect]
     Indication: RHEUMATOID ARTHRITIS
     Dosage: 40 MG, 1 IN 10 D, SUBCUTANEOUS
     Route: 058
     Dates: start: 20031201
  2. HYDROXYCHLOROQUINE PHOSPHATE [Concomitant]
  3. GOLD SHOT [Concomitant]
  4. ATORVASTATIN CALCIUM [Concomitant]
  5. FOLIC ACID [Concomitant]
  6. LEVOTHYROXINE SODIUM [Concomitant]
  7. PRO [Concomitant]
  8. TRIMETHOBENZAMIDE HCL [Concomitant]
  9. OXYGEN [Concomitant]
  10. FUROSEMIDE [Concomitant]
  11. METHADONE [Concomitant]
  12. VICODIN [Concomitant]
  13. CALCIUM GLUCONATE [Concomitant]

REACTIONS (1)
  - SKIN NODULE [None]
